FAERS Safety Report 9516703 (Version 1)
Quarter: 2013Q1

REPORT INFORMATION
  Report Type: Spontaneous
  Country: US (occurrence: None)
  Receive Date: 20130305
  Receipt Date: 20130305
  Transmission Date: 20140127
  Serious: Yes (Hospitalization)
  Sender: FDA-Public Use
  Company Number: 163-21880-12011820

PATIENT
  Age: 73 Year
  Sex: Male

DRUGS (9)
  1. REVLIMID (LENALIDOMIDE) (CAPSULES) [Suspect]
     Indication: PLASMA CELL MYELOMA
     Dosage: 15 MG, DAILY FOR 21 DAYS, PO
     Dates: start: 20111027
  2. ACYCLOVIR (ACICLOVIR) (ACICLOVIR) [Concomitant]
  3. CITALOPRAM HYDROBROMIDE (CITALOPRAM HYDROBROMIDE) [Concomitant]
  4. MORPHINE SULFATE (MORPHINE SULFATE) INJECTION [Concomitant]
  5. SIMVASTATIN (SIMVASTATIN) [Concomitant]
  6. BUPROPION HCL (BUPROPION HYDROCHLORIDE) [Concomitant]
  7. DOXAZOSIN MESYLATE (DOXAZOSIN MESILATE) [Concomitant]
  8. SENOKOT (SENNA FRUIT) [Concomitant]
  9. DEXAMETHASONE (DEXAMETHASONE) [Concomitant]

REACTIONS (1)
  - Hip fracture [None]
